FAERS Safety Report 24875435 (Version 1)
Quarter: 2025Q1

REPORT INFORMATION
  Report Type: Spontaneous
  Country: AR (occurrence: AR)
  Receive Date: 20250122
  Receipt Date: 20250122
  Transmission Date: 20250408
  Serious: Yes (Other)
  Sender: PFIZER
  Company Number: AR-PFIZER INC-202500015048

PATIENT
  Age: 62 Year
  Sex: Female

DRUGS (1)
  1. IBRANCE [Suspect]
     Active Substance: PALBOCICLIB
     Indication: Breast cancer metastatic
     Dates: start: 20161105

REACTIONS (2)
  - Ophthalmic vein thrombosis [Not Recovered/Not Resolved]
  - Lung disorder [Not Recovered/Not Resolved]
